FAERS Safety Report 6722215-X (Version None)
Quarter: 2010Q2

REPORT INFORMATION
  Report Type: 
  Country: None (occurrence: None)
  Receive Date: 20100512
  Receipt Date: 20100428
  Transmission Date: 20101027
  Serious: Yes (Hospitalization, Other)
  Sender: FDA-Public Use
  Company Number: US-ELI_LILLY_AND_COMPANY-US201005000573

PATIENT
  Age: 76 Year
  Sex: Female

DRUGS (8)
  1. CYMBALTA [Suspect]
     Indication: NEUROPATHY PERIPHERAL
     Dosage: 60 MG, DAILY (1/D)
     Dates: start: 20090101, end: 20100301
  2. SYNTHROID [Concomitant]
  3. OXYCODONE [Concomitant]
  4. PLAVIX [Concomitant]
  5. METOPROLOL [Concomitant]
     Dosage: 12.5 MG, DAILY (1/D)
  6. PEPCID [Concomitant]
     Dosage: 20 MG, DAILY (1/D)
  7. XANAX [Concomitant]
     Dosage: 0.25 MG, EACH EVENING
  8. TRAMADOL HCL [Concomitant]
     Dosage: 50 MG, EVERY 6 HRS

REACTIONS (14)
  - ASTHENIA [None]
  - CONFUSIONAL STATE [None]
  - DENTAL CARE [None]
  - DIZZINESS [None]
  - DYSARTHRIA [None]
  - ERYTHEMA [None]
  - FEELING ABNORMAL [None]
  - GROIN PAIN [None]
  - HEART RATE INCREASED [None]
  - HYPERHIDROSIS [None]
  - LOSS OF CONSCIOUSNESS [None]
  - MOVEMENT DISORDER [None]
  - MUSCULAR WEAKNESS [None]
  - SYNCOPE [None]
